FAERS Safety Report 6812069-5 (Version None)
Quarter: 2010Q2

REPORT INFORMATION
  Report Type: 
  Country: None (occurrence: None)
  Receive Date: 20100628
  Receipt Date: 20100615
  Transmission Date: 20101027
  Serious: Yes (Disabling, Other)
  Sender: FDA-Public Use
  Company Number: 2010AL003591

PATIENT
  Sex: Male

DRUGS (3)
  1. CARBAMAZEPINE [Suspect]
  2. LAMOTRIGINE [Concomitant]
  3. PREV MEDS [Concomitant]

REACTIONS (9)
  - ALANINE AMINOTRANSFERASE INCREASED [None]
  - ATAXIA [None]
  - AUTISM [None]
  - CONDITION AGGRAVATED [None]
  - CONVULSION [None]
  - GENE MUTATION [None]
  - HYPERKINESIA [None]
  - LACTATE PYRUVATE RATIO INCREASED [None]
  - MENTAL RETARDATION [None]
